FAERS Safety Report 6146511-2 (Version None)
Quarter: 2009Q2

REPORT INFORMATION
  Report Type: 
  Country: None (occurrence: None)
  Receive Date: 20090403
  Receipt Date: 20090403
  Transmission Date: 20091009
  Serious: Yes (Other)
  Sender: FDA-Public Use
  Company Number: None

PATIENT
  Sex: Male
  Weight: 87.0906 kg

DRUGS (8)
  1. CITALOPRAM HYDROBROMIDE [Suspect]
     Indication: ANXIETY
     Dosage: 20 MG 1 TIME A DAY
     Dates: start: 20090123
  2. CITALOPRAM HYDROBROMIDE [Suspect]
     Indication: DEPRESSION
     Dosage: 20 MG 1 TIME A DAY
     Dates: start: 20090123
  3. CITALOPRAM HYDROBROMIDE [Suspect]
     Indication: ANXIETY
     Dosage: 20 MG 1 TIME A DAY
     Dates: start: 20090124
  4. CITALOPRAM HYDROBROMIDE [Suspect]
     Indication: DEPRESSION
     Dosage: 20 MG 1 TIME A DAY
     Dates: start: 20090124
  5. CITALOPRAM HYDROBROMIDE [Suspect]
     Indication: ANXIETY
     Dosage: 20 MG 1 TIME A DAY
     Dates: start: 20090125
  6. CITALOPRAM HYDROBROMIDE [Suspect]
     Indication: DEPRESSION
     Dosage: 20 MG 1 TIME A DAY
     Dates: start: 20090125
  7. SERTRALINE HCL [Suspect]
     Indication: ANXIETY
     Dosage: 25MG 1 TIME A DAY
     Dates: start: 20090309
  8. SERTRALINE HCL [Suspect]
     Indication: DEPRESSION
     Dosage: 25MG 1 TIME A DAY
     Dates: start: 20090309

REACTIONS (2)
  - HYPERTENSION [None]
  - PALPITATIONS [None]
